FAERS Safety Report 9420710 (Version 1)
Quarter: 2013Q3

REPORT INFORMATION
  Report Type: Spontaneous
  Country: US (occurrence: US)
  Receive Date: 20130725
  Receipt Date: 20130725
  Transmission Date: 20140515
  Serious: No
  Sender: FDA-Public Use
  Company Number: US-ABBOTT-13P-163-1076846-00

PATIENT
  Sex: Female
  Weight: 104.42 kg

DRUGS (3)
  1. SYNTHROID [Suspect]
     Indication: PRODUCT USED FOR UNKNOWN INDICATION
  2. VITAMIN B12 [Concomitant]
     Indication: VITAMIN B12 DEFICIENCY
     Route: 050
  3. VITAMIN D NOS [Concomitant]
     Indication: VITAMIN D DECREASED

REACTIONS (11)
  - Blood thyroid stimulating hormone abnormal [Unknown]
  - Weight increased [Not Recovered/Not Resolved]
  - Alopecia [Not Recovered/Not Resolved]
  - Fatigue [Unknown]
  - Myalgia [Not Recovered/Not Resolved]
  - Arthralgia [Not Recovered/Not Resolved]
  - Unevaluable event [Not Recovered/Not Resolved]
  - Thyroxine increased [Unknown]
  - Thyroxine free increased [Unknown]
  - Tri-iodothyronine decreased [Unknown]
  - Tri-iodothyronine free decreased [Unknown]
